FAERS Safety Report 17371278 (Version 1)
Quarter: 2020Q1

REPORT INFORMATION
  Report Type: Other
  Country: MY (occurrence: MY)
  Receive Date: 20200205
  Receipt Date: 20200205
  Transmission Date: 20200409
  Serious: Yes (Hospitalization)
  Sender: FDA-Public Use
  Company Number: MY-SUNRISE PHARMACEUTICAL, INC.-2079836

PATIENT
  Age: 57 Year
  Sex: Female

DRUGS (2)
  1. METHADONE [Suspect]
     Active Substance: METHADONE HYDROCHLORIDE
     Route: 065
  2. OXYCODONE HYDROCHLORIDE. [Suspect]
     Active Substance: OXYCODONE HYDROCHLORIDE
     Indication: PAIN
     Route: 065

REACTIONS (5)
  - Hypoxia [Unknown]
  - Somnolence [Unknown]
  - Toxicity to various agents [Unknown]
  - Respiratory depression [Recovering/Resolving]
  - Bradypnoea [Unknown]
